FAERS Safety Report 21719115 (Version 1)
Quarter: 2022Q4

REPORT INFORMATION
  Report Type: Spontaneous
  Country: US (occurrence: US)
  Receive Date: 20221213
  Receipt Date: 20221213
  Transmission Date: 20230112
  Serious: Yes (Other)
  Sender: FDA-Public Use
  Company Number: US-AUROBINDO-AUR-APL-2022-051983

PATIENT
  Age: 14 Year
  Sex: Female

DRUGS (4)
  1. VALACYCLOVIR HYDROCHLORIDE [Suspect]
     Active Substance: VALACYCLOVIR HYDROCHLORIDE
     Indication: Necrotising retinitis
     Dosage: 500 MILLIGRAM, 3 TIMES A DAY
     Route: 048
  2. VALACYCLOVIR HYDROCHLORIDE [Suspect]
     Active Substance: VALACYCLOVIR HYDROCHLORIDE
     Dosage: 1000 MILLIGRAM, 3 TIMES A DAY
     Route: 048
  3. FOSCARNET [Concomitant]
     Active Substance: FOSCARNET
     Indication: Necrotising retinitis
     Dosage: 2 MILLIGRAM, EVERY OTHER DAY
  4. FOSCARNET [Concomitant]
     Active Substance: FOSCARNET
     Dosage: 1 MILLIGRAM

REACTIONS (2)
  - Necrotising retinitis [Recovering/Resolving]
  - Treatment noncompliance [Unknown]
